FAERS Safety Report 8285692-1 (Version None)
Quarter: 2012Q2

REPORT INFORMATION
  Report Type: 
  Country: None (occurrence: None)
  Receive Date: 20120413
  Receipt Date: 20120408
  Transmission Date: 20120825
  Serious: Yes (Hospitalization, Disabling)
  Sender: FDA-Public Use
  Company Number: GR-AMGEN-GRCSP2011046504

PATIENT
  Age: 26 Year
  Sex: Female

DRUGS (2)
  1. PROMACTA [Concomitant]
     Dosage: UNK
  2. NPLATE [Suspect]
     Indication: IDIOPATHIC THROMBOCYTOPENIC PURPURA
     Dosage: UNK
     Dates: start: 20100928, end: 20110831

REACTIONS (4)
  - HYPOGLYCAEMIA [None]
  - DEHYDRATION [None]
  - DIZZINESS [None]
  - NAUSEA [None]
